FAERS Safety Report 15298045 (Version 1)
Quarter: 2018Q3

REPORT INFORMATION
  Report Type: Report from Study
  Country: JP (occurrence: JP)
  Receive Date: 20180820
  Receipt Date: 20180820
  Transmission Date: 20181010
  Serious: Yes (Hospitalization)
  Sender: FDA-Public Use
  Company Number: JP-CELGENEUS-JPN-20180804784

PATIENT
  Age: 69 Year
  Sex: Male

DRUGS (31)
  1. MEDI4736 (DURVALUMAB) [Suspect]
     Active Substance: DURVALUMAB
     Indication: NON-SMALL CELL LUNG CANCER
     Dosage: 1500 MILLIGRAM
     Route: 042
     Dates: start: 20180507, end: 20180507
  2. MEDI4736 (DURVALUMAB) [Suspect]
     Active Substance: DURVALUMAB
     Indication: NON-SMALL CELL LUNG CANCER
     Dosage: 1500 MILLIGRAM
     Route: 042
     Dates: start: 20180618, end: 20180618
  3. AMLODIPINE BESYLATE. [Concomitant]
     Active Substance: AMLODIPINE BESYLATE
     Indication: HYPERTENSION
     Dosage: 2.5 MILLIGRAM
     Route: 048
  4. METFORMIN HYDROCHLORIDE. [Concomitant]
     Active Substance: METFORMIN HYDROCHLORIDE
     Indication: TYPE 2 DIABETES MELLITUS
     Dosage: 750 MILLIGRAM
     Route: 048
  5. ABRAXANE [Suspect]
     Active Substance: PACLITAXEL
     Dosage: 100 MG/M2
     Route: 042
     Dates: start: 20180702, end: 20180702
  6. MEDI4736 (DURVALUMAB) [Suspect]
     Active Substance: DURVALUMAB
     Indication: NON-SMALL CELL LUNG CANCER
     Dosage: 1500 MILLIGRAM
     Route: 042
     Dates: start: 20180709, end: 20180709
  7. CARBOPLATIN. [Concomitant]
     Active Substance: CARBOPLATIN
     Route: 042
     Dates: start: 20180528, end: 20180528
  8. INSULIN [Concomitant]
     Active Substance: INSULIN NOS
     Indication: TYPE 2 DIABETES MELLITUS
     Dosage: 2.5 MILLIGRAM
     Route: 058
  9. POTASSIUM CHLORIDE. [Concomitant]
     Active Substance: POTASSIUM CHLORIDE
     Indication: HYPONATRAEMIA
     Dosage: 6 GRAM
     Route: 048
     Dates: start: 20180806
  10. ABRAXANE [Suspect]
     Active Substance: PACLITAXEL
     Dosage: 100 MG/M2
     Route: 042
     Dates: start: 20180501, end: 20180501
  11. ABRAXANE [Suspect]
     Active Substance: PACLITAXEL
     Indication: NON-SMALL CELL LUNG CANCER
     Dosage: 100 MILLIGRAM/SQ. METER
     Route: 042
     Dates: start: 20180416, end: 20180416
  12. MEDI4736 (DURVALUMAB) [Suspect]
     Active Substance: DURVALUMAB
     Indication: NON-SMALL CELL LUNG CANCER
     Dosage: 1500 MILLIGRAM
     Route: 042
     Dates: start: 20180416, end: 20180416
  13. MEDI4736 (DURVALUMAB) [Suspect]
     Active Substance: DURVALUMAB
     Indication: NON-SMALL CELL LUNG CANCER
     Dosage: 1500 MILLIGRAM
     Route: 042
     Dates: start: 20180528, end: 20180528
  14. PANCRELIPASE. [Concomitant]
     Active Substance: PANCRELIPASE
     Indication: PANCREATITIS CHRONIC
     Dosage: 1800 MILLIGRAM
     Route: 048
  15. ABRAXANE [Suspect]
     Active Substance: PACLITAXEL
     Dosage: 100 MG/M2
     Route: 042
     Dates: start: 20180507, end: 20180507
  16. MEDI4736 (DURVALUMAB) [Suspect]
     Active Substance: DURVALUMAB
     Indication: NON-SMALL CELL LUNG CANCER
     Dosage: 1500 MILLIGRAM
     Route: 042
     Dates: start: 20180806, end: 20180806
  17. CANDESARTAN CILEXETIL. [Concomitant]
     Active Substance: CANDESARTAN CILEXETIL
     Indication: HYPERTENSION
     Dosage: 8 MILLIGRAM
     Route: 048
  18. CAMOSTAT MESILATE [Concomitant]
     Active Substance: CAMOSTAT MESYLATE
     Indication: PANCREATITIS CHRONIC
     Dosage: 600 MILLIGRAM
     Route: 048
  19. MAGNESIUM OXIDE. [Concomitant]
     Active Substance: MAGNESIUM OXIDE
     Indication: CONSTIPATION
     Dosage: 330.0MG AS REQUIRED
     Route: 048
  20. ABRAXANE [Suspect]
     Active Substance: PACLITAXEL
     Dosage: 100 MG/M2
     Route: 042
     Dates: start: 20180528, end: 20180528
  21. CARBOPLATIN. [Concomitant]
     Active Substance: CARBOPLATIN
     Route: 042
     Dates: start: 20180507, end: 20180507
  22. CARBOPLATIN. [Concomitant]
     Active Substance: CARBOPLATIN
     Route: 042
     Dates: start: 20180618, end: 20180618
  23. ABRAXANE [Suspect]
     Active Substance: PACLITAXEL
     Dosage: 100 MG/M2
     Route: 042
     Dates: start: 20180604, end: 20180604
  24. CARBOPLATIN. [Concomitant]
     Active Substance: CARBOPLATIN
     Indication: NON-SMALL CELL LUNG CANCER
     Route: 042
     Dates: start: 20180416, end: 20180416
  25. ABRAXANE [Suspect]
     Active Substance: PACLITAXEL
     Dosage: 100 MG/M2
     Route: 042
     Dates: start: 20180423, end: 20180423
  26. ABRAXANE [Suspect]
     Active Substance: PACLITAXEL
     Dosage: 100 MG/M2
     Route: 042
     Dates: start: 20180514, end: 20180514
  27. ABRAXANE [Suspect]
     Active Substance: PACLITAXEL
     Dosage: 100 MG/M2
     Route: 042
     Dates: start: 20180521, end: 20180521
  28. ABRAXANE [Suspect]
     Active Substance: PACLITAXEL
     Dosage: 100 MG/M2
     Route: 042
     Dates: start: 20180618, end: 20180618
  29. ABRAXANE [Suspect]
     Active Substance: PACLITAXEL
     Dosage: 100 MG/M2
     Route: 042
     Dates: start: 20180625, end: 20180625
  30. ALLOPURINOL. [Concomitant]
     Active Substance: ALLOPURINOL
     Indication: HYPERURICAEMIA
     Route: 048
  31. INSULIN ASPART [Concomitant]
     Active Substance: INSULIN ASPART
     Indication: TYPE 2 DIABETES MELLITUS
     Dosage: 2.5 MILLIGRAM
     Route: 058

REACTIONS (1)
  - Hypopituitarism [Not Recovered/Not Resolved]

NARRATIVE: CASE EVENT DATE: 20180810
